FAERS Safety Report 10560169 (Version 2)
Quarter: 2015Q1

REPORT INFORMATION
  Report Type: Report from Study
  Country: US (occurrence: US)
  Receive Date: 20141103
  Receipt Date: 20150108
  Transmission Date: 20150720
  Serious: Yes (Other)
  Sender: FDA-Public Use
  Company Number: PHEH2014US021584

PATIENT
  Age: 62 Year
  Sex: Male

DRUGS (1)
  1. GLEEVEC [Suspect]
     Active Substance: IMATINIB MESYLATE
     Indication: CHRONIC MYELOID LEUKAEMIA
     Dosage: 400 MG, QD
     Route: 048
     Dates: start: 200702

REACTIONS (6)
  - Chronic myeloid leukaemia [Unknown]
  - Vomiting [Unknown]
  - Retinopathy [Unknown]
  - Vision blurred [Unknown]
  - Diarrhoea [Unknown]
  - Malignant neoplasm progression [Unknown]

NARRATIVE: CASE EVENT DATE: 200702
